FAERS Safety Report 22182215 (Version 1)
Quarter: 2023Q2

REPORT INFORMATION
  Report Type: Report from Study
  Country: RO (occurrence: RO)
  Receive Date: 20230406
  Receipt Date: 20230406
  Transmission Date: 20230722
  Serious: Yes (Hospitalization)
  Sender: FDA-Public Use
  Company Number: RO-ABBVIE-4717726

PATIENT
  Age: 62 Year
  Sex: Female

DRUGS (6)
  1. DASABUVIR [Suspect]
     Active Substance: DASABUVIR
     Indication: Hepatitis C
     Dosage: 1-0-1
     Route: 048
     Dates: start: 20221027, end: 20230118
  2. Estan [Concomitant]
     Indication: Mental disorder
     Dosage: 1 TABLET
     Route: 048
  3. NEBIVOLOL [Concomitant]
     Active Substance: NEBIVOLOL
     Indication: Hypertension
     Dosage: 1 TABLET
     Route: 048
  4. OMBITASVIR\PARITAPREVIR\RITONAVIR [Suspect]
     Active Substance: OMBITASVIR\PARITAPREVIR\RITONAVIR
     Indication: Hepatitis C
     Dosage: 2-0-0
     Route: 048
     Dates: start: 20221027, end: 20230118
  5. XANAX [Concomitant]
     Active Substance: ALPRAZOLAM
     Indication: Mental disorder
     Dosage: 1 TABLET
     Route: 048
  6. AMLODIPINE BESYLATE\INDAPAMIDE\PERINDOPRIL ARGININE [Concomitant]
     Active Substance: AMLODIPINE BESYLATE\INDAPAMIDE\PERINDOPRIL ARGININE
     Indication: Hypertension
     Dosage: 1 TABLET
     Route: 048

REACTIONS (1)
  - Bone pain [Recovered/Resolved]
